FAERS Safety Report 13448222 (Version 2)
Quarter: 2017Q2

REPORT INFORMATION
  Report Type: Report from Study
  Country: CA (occurrence: CA)
  Receive Date: 20170417
  Receipt Date: 20170426
  Transmission Date: 20170830
  Serious: Yes (Other)
  Sender: FDA-Public Use
  Company Number: CA-HLSUS-2017-CA-000131

PATIENT
  Age: 61 Year
  Sex: Female

DRUGS (4)
  1. DIVALPROEX [Concomitant]
     Active Substance: DIVALPROEX SODIUM
     Indication: SCHIZOAFFECTIVE DISORDER BIPOLAR TYPE
     Dosage: 100 MG QHS
     Route: 048
  2. CLOZARIL [Suspect]
     Active Substance: CLOZAPINE
     Indication: SCHIZOAFFECTIVE DISORDER BIPOLAR TYPE
     Dosage: 200 MG QHS
     Route: 048
     Dates: start: 20130712
  3. BENZTROPINE [Concomitant]
     Active Substance: BENZTROPINE
     Dosage: 1 MG BID
     Route: 048
     Dates: end: 20150803
  4. ATROPINE. [Concomitant]
     Active Substance: ATROPINE
     Indication: SALIVARY HYPERSECRETION
     Dosage: 1 TO 2 DROPS PRN IF HYPERSALIVATION

REACTIONS (1)
  - Lymphocyte count increased [Unknown]

NARRATIVE: CASE EVENT DATE: 20140604
